FAERS Safety Report 8617868-5 (Version None)
Quarter: 2012Q3

REPORT INFORMATION
  Report Type: 
  Country: None (occurrence: None)
  Receive Date: 20120824
  Receipt Date: 20120308
  Transmission Date: 20120928
  Serious: No
  Sender: FDA-Public Use
  Company Number: US-ASTRAZENECA-2012SE15511

PATIENT
  Age: 42 Year
  Sex: Female

DRUGS (3)
  1. VITAMIN TAB [Concomitant]
  2. SYMBICORT [Suspect]
     Dosage: 160/4.5 MCG, TWO PUFF, AT ONCE, UNKNOWN
     Route: 055
  3. CALCIUM [Concomitant]

REACTIONS (7)
  - SENSATION OF FOREIGN BODY [None]
  - HEADACHE [None]
  - URINARY INCONTINENCE [None]
  - DYSGEUSIA [None]
  - DRUG INEFFECTIVE [None]
  - DYSPNOEA [None]
  - MALAISE [None]
